FAERS Safety Report 9271352 (Version 1)
Quarter: 2013Q2

REPORT INFORMATION
  Report Type: Spontaneous
  Country: US (occurrence: US)
  Receive Date: 20130506
  Receipt Date: 20130506
  Transmission Date: 20140414
  Serious: No
  Sender: FDA-Public Use
  Company Number: US-PFIZER INC-2013137614

PATIENT
  Sex: Male

DRUGS (2)
  1. ADVIL [Suspect]
     Indication: OSTEOARTHRITIS
     Dosage: UNK
  2. CELEBREX [Suspect]
     Indication: OSTEOARTHRITIS
     Dosage: UNK

REACTIONS (3)
  - Abdominal pain [Unknown]
  - Constipation [Unknown]
  - Dyspepsia [Unknown]
